FAERS Safety Report 10450527 (Version 2)
Quarter: 2014Q4

REPORT INFORMATION
  Report Type: Spontaneous
  Country: JP (occurrence: JP)
  Receive Date: 20140912
  Receipt Date: 20141014
  Transmission Date: 20150528
  Serious: Yes (Other)
  Sender: FDA-Public Use
  Company Number: JP-GLAXOSMITHKLINE-B1031066A

PATIENT
  Age: 76 Year
  Sex: Male

DRUGS (4)
  1. LIVALO [Concomitant]
     Active Substance: PITAVASTATIN CALCIUM
     Indication: HYPERLIPIDAEMIA
     Dosage: 2 MG, QD
     Route: 048
     Dates: start: 20100722
  2. VALACICLOVIR HYDROCHLORIDE [Suspect]
     Active Substance: VALACYCLOVIR HYDROCHLORIDE
     Indication: HERPES ZOSTER
     Dosage: 1000 MG, TID
     Route: 048
     Dates: start: 20140829, end: 20140902
  3. PURSENNID [Concomitant]
     Active Substance: SENNOSIDES A AND B
     Indication: ASTHMA
     Dates: start: 20100411
  4. ZETIA [Concomitant]
     Active Substance: EZETIMIBE
     Indication: HYPERLIPIDAEMIA
     Dosage: 10 MG, QD
     Dates: start: 20130121

REACTIONS (4)
  - Somnolence [Recovered/Resolved]
  - Depressed level of consciousness [Recovered/Resolved]
  - Lethargy [Recovered/Resolved]
  - Somnolence [Recovered/Resolved]

NARRATIVE: CASE EVENT DATE: 2014
